FAERS Safety Report 5217313-6 (Version None)
Quarter: 2007Q1

REPORT INFORMATION
  Report Type: 
  Country: None (occurrence: None)
  Receive Date: 20070124
  Receipt Date: 20051229
  Transmission Date: 20070707
  Serious: No
  Sender: FDA-Public Use
  Company Number: US-GLAXOSMITHKLINE-A0587347A

PATIENT
  Age: 46 Year
  Sex: Female

DRUGS (1)
  1. PAXIL CR [Suspect]
     Indication: DEPRESSION
     Dosage: 37.5MG TWICE PER DAY
     Route: 048
     Dates: start: 20030101

REACTIONS (2)
  - CRYING [None]
  - DRUG INEFFECTIVE [None]
